FAERS Safety Report 23130683 (Version 1)
Quarter: 2023Q4

REPORT INFORMATION
  Report Type: Spontaneous
  Country: US (occurrence: None)
  Receive Date: 20231031
  Receipt Date: 20231031
  Transmission Date: 20240109
  Serious: Yes (Other)
  Sender: FDA-Public Use
  Company Number: None

PATIENT
  Sex: Male
  Weight: 62.6 kg

DRUGS (7)
  1. ATORVASTATIN [Suspect]
     Active Substance: ATORVASTATIN
     Indication: Product used for unknown indication
     Dosage: FREQUENCY : DAILY;?
     Route: 048
     Dates: start: 202211, end: 2023
  2. XTANDI [Concomitant]
     Active Substance: ENZALUTAMIDE
  3. CLOPIDOGREL [Concomitant]
     Active Substance: CLOPIDOGREL BISULFATE
  4. TAMSULOSIN [Concomitant]
     Active Substance: TAMSULOSIN
  5. LOW DOSE ASPIRIN [Concomitant]
     Active Substance: ASPIRIN
  6. ZINC [Concomitant]
     Active Substance: PYRITHIONE ZINC\ZINC\ZINC CHLORIDE
  7. VITAMIN D3 [Concomitant]
     Active Substance: CHOLECALCIFEROL

REACTIONS (13)
  - Pruritus [None]
  - Lip blister [None]
  - Chest discomfort [None]
  - Dysphonia [None]
  - Lip swelling [None]
  - Pelvic pain [None]
  - Abdominal pain [None]
  - Speech disorder [None]
  - Cognitive disorder [None]
  - Balance disorder [None]
  - Chromaturia [None]
  - Flank pain [None]
  - Fatigue [None]
